FAERS Safety Report 22231883 (Version 1)
Quarter: 2023Q2

REPORT INFORMATION
  Report Type: Spontaneous
  Country: US (occurrence: None)
  Receive Date: 20230420
  Receipt Date: 20230420
  Transmission Date: 20230722
  Serious: No
  Sender: FDA-Public Use
  Company Number: US-ROCHE-3114306

PATIENT
  Sex: Male

DRUGS (1)
  1. ESBRIET [Suspect]
     Active Substance: PIRFENIDONE
     Indication: Emphysema
     Dosage: 3 TIMES A DAY WITH FOOD
     Route: 048
     Dates: start: 20210909

REACTIONS (2)
  - Product dose omission issue [Unknown]
  - No adverse event [Unknown]
